FAERS Safety Report 9694090 (Version 2)
Quarter: 2013Q4

REPORT INFORMATION
  Report Type: Spontaneous
  Country: JP (occurrence: JP)
  Receive Date: 20131118
  Receipt Date: 20131118
  Transmission Date: 20140711
  Serious: Yes (Death)
  Sender: FDA-Public Use
  Company Number: JP-ASTRAZENECA-2013SE60392

PATIENT
  Age: 68 Year
  Sex: Female
  Weight: 45 kg

DRUGS (7)
  1. ARIMIDEX [Suspect]
     Indication: BREAST CANCER
     Route: 048
     Dates: start: 20120820, end: 20120908
  2. DECADRON [Concomitant]
     Indication: METASTASES TO CENTRAL NERVOUS SYSTEM
     Route: 048
     Dates: start: 20120820
  3. TAKEPRON [Concomitant]
     Indication: PROPHYLAXIS AGAINST GASTROINTESTINAL ULCER
     Route: 048
     Dates: start: 20120820
  4. DEZOLAM [Concomitant]
     Indication: INSOMNIA
     Route: 048
     Dates: start: 20120816
  5. GLYCEREB [Concomitant]
     Indication: METASTASES TO CENTRAL NERVOUS SYSTEM
     Route: 041
     Dates: start: 20120814
  6. LIPITOR [Concomitant]
     Indication: HYPERLIPIDAEMIA
     Route: 048
  7. CORINAEL [Concomitant]
     Indication: HYPERTENSION
     Route: 048

REACTIONS (2)
  - Cerebral infarction [Fatal]
  - Metastases to central nervous system [Fatal]
